FAERS Safety Report 20821471 (Version 2)
Quarter: 2022Q3

REPORT INFORMATION
  Report Type: Spontaneous
  Country: US (occurrence: US)
  Receive Date: 20220512
  Receipt Date: 20220902
  Transmission Date: 20221027
  Serious: No
  Sender: FDA-Public Use
  Company Number: US-PFIZER INC-202200476054

PATIENT
  Age: 43 Year
  Sex: Female

DRUGS (1)
  1. XELJANZ XR [Suspect]
     Active Substance: TOFACITINIB CITRATE
     Indication: Rheumatoid arthritis
     Dosage: 11 MG, 1 PER DAY (ONCE DAILY)
     Route: 048
     Dates: start: 20211201

REACTIONS (3)
  - Pain in extremity [Unknown]
  - Depressed mood [Unknown]
  - Discomfort [Unknown]

NARRATIVE: CASE EVENT DATE: 20220101
